FAERS Safety Report 10766345 (Version 1)
Quarter: 2015Q1

REPORT INFORMATION
  Report Type: Spontaneous
  Country: CN (occurrence: CN)
  Receive Date: 20150205
  Receipt Date: 20150205
  Transmission Date: 20150721
  Serious: Yes (Death, Other)
  Sender: FDA-Public Use
  Company Number: PHHY2015CN012450

PATIENT
  Age: 46 Year
  Sex: Female

DRUGS (2)
  1. CISPLATIN. [Concomitant]
     Active Substance: CISPLATIN
     Indication: CERVIX CARCINOMA RECURRENT
     Dosage: 120 MG, UNK
     Route: 041
  2. PACLITAXEL. [Suspect]
     Active Substance: PACLITAXEL
     Indication: CERVIX CARCINOMA RECURRENT
     Dosage: 270 MG, UNK
     Route: 041

REACTIONS (14)
  - Pyrexia [Unknown]
  - Urethral pain [Unknown]
  - Haematochezia [Fatal]
  - Dysuria [Unknown]
  - Hydronephrosis [Unknown]
  - Haematuria [Unknown]
  - Urinary tract infection [Unknown]
  - Pollakiuria [Unknown]
  - Cystitis haemorrhagic [Unknown]
  - Platelet count decreased [Unknown]
  - Oliguria [Unknown]
  - Syncope [Unknown]
  - Haematemesis [Fatal]
  - Blood urine present [Unknown]
